FAERS Safety Report 6602945-0 (Version None)
Quarter: 2010Q1

REPORT INFORMATION
  Report Type: 
  Country: None (occurrence: None)
  Receive Date: 20100226
  Receipt Date: 20100218
  Transmission Date: 20100710
  Serious: Yes (Other)
  Sender: FDA-Public Use
  Company Number: JP-JNJFOC-20100208563

PATIENT
  Sex: Female

DRUGS (1)
  1. DUROTEP MT [Suspect]
     Indication: CANCER PAIN
     Route: 062

REACTIONS (3)
  - CONSTIPATION [None]
  - PLEURAL EFFUSION [None]
  - VITAL CAPACITY DECREASED [None]
